FAERS Safety Report 9407875 (Version 1)
Quarter: 2013Q2

REPORT INFORMATION
  Report Type: Spontaneous
  Country: US (occurrence: None)
  Receive Date: 20130430
  Receipt Date: 20130430
  Transmission Date: 20140414
  Serious: Yes (Hospitalization, Other)
  Sender: FDA-Public Use
  Company Number: ADR-2009-6148

PATIENT
  Age: 43 Year
  Sex: Female

DRUGS (2)
  1. LIORESAL INTRATHECAL (BACLOFEN INJECTION) 500 MCG/ML [Suspect]
  2. UNSPECIFIED INGREDIENTS [Suspect]

REACTIONS (4)
  - Incision site erythema [None]
  - Incision site complication [None]
  - Purulence [None]
  - Device related infection [None]
